FAERS Safety Report 20357099 (Version 1)
Quarter: 2022Q1

REPORT INFORMATION
  Report Type: Spontaneous
  Country: US (occurrence: US)
  Receive Date: 20220120
  Receipt Date: 20220120
  Transmission Date: 20220423
  Serious: No
  Sender: FDA-Public Use
  Company Number: US-BAYER-2022A010825

PATIENT
  Age: 50 Year
  Sex: Female
  Weight: 53.07 kg

DRUGS (2)
  1. ALEVE [Suspect]
     Active Substance: NAPROXEN SODIUM
     Indication: Pyrexia
     Dosage: 1 DF, BID
     Dates: start: 20220114
  2. ALPRAZOLAM [Concomitant]
     Active Substance: ALPRAZOLAM
     Indication: Insomnia
     Dosage: 0.5 MG, HS

REACTIONS (3)
  - Pyrexia [Recovering/Resolving]
  - Headache [Unknown]
  - Drug ineffective [None]

NARRATIVE: CASE EVENT DATE: 20220114
